FAERS Safety Report 25664040 (Version 1)
Quarter: 2025Q3

REPORT INFORMATION
  Report Type: Spontaneous
  Country: US (occurrence: US)
  Receive Date: 20250811
  Receipt Date: 20250811
  Transmission Date: 20251021
  Serious: Yes (Other)
  Sender: LUPIN
  Company Number: US-LUPIN PHARMACEUTICALS INC.-2025-06903

PATIENT
  Age: 60 Year

DRUGS (1)
  1. TOLVAPTAN [Suspect]
     Active Substance: TOLVAPTAN
     Indication: Product used for unknown indication
     Dosage: 15 MG, BID

REACTIONS (4)
  - Urinary tract infection [Unknown]
  - Pelvic pain [Unknown]
  - Dysuria [Unknown]
  - Urinary incontinence [Unknown]
